FAERS Safety Report 13649059 (Version 2)
Quarter: 2017Q3

REPORT INFORMATION
  Report Type: Spontaneous
  Country: JP (occurrence: JP)
  Receive Date: 20170613
  Receipt Date: 20170809
  Transmission Date: 20171127
  Serious: Yes (Other)
  Sender: FDA-Public Use
  Company Number: JP-BAUSCH-BL-2017-018778

PATIENT
  Age: 83 Year
  Sex: Female

DRUGS (1)
  1. VISUDYNE [Suspect]
     Active Substance: VERTEPORFIN
     Indication: TILTED DISC SYNDROME
     Route: 042
     Dates: start: 20121116

REACTIONS (3)
  - Tilted disc syndrome [Unknown]
  - Product use in unapproved indication [Unknown]
  - Disease progression [Unknown]
